FAERS Safety Report 6277103-2 (Version None)
Quarter: 2009Q3

REPORT INFORMATION
  Report Type: 
  Country: None (occurrence: None)
  Receive Date: 20090722
  Receipt Date: 20090204
  Transmission Date: 20100115
  Serious: No
  Sender: FDA-Public Use
  Company Number: US-BRISTOL-MYERS SQUIBB COMPANY-14462311

PATIENT
  Age: 87 Year
  Sex: Male
  Weight: 94 kg

DRUGS (5)
  1. COUMADIN [Suspect]
     Indication: CEREBROVASCULAR ACCIDENT
     Route: 048
     Dates: start: 20030101
  2. LIPITOR [Concomitant]
  3. LISINOPRIL [Concomitant]
  4. PROSCAR [Concomitant]
  5. ASPIRIN [Concomitant]

REACTIONS (1)
  - SKIN DISCOLOURATION [None]
